FAERS Safety Report 6630777-6 (Version None)
Quarter: 2010Q1

REPORT INFORMATION
  Report Type: 
  Country: None (occurrence: None)
  Receive Date: 20100311
  Receipt Date: 20100303
  Transmission Date: 20100710
  Serious: Yes (Other)
  Sender: FDA-Public Use
  Company Number: FR-ABBOTT-10P-056-0626673-00

PATIENT
  Sex: Female
  Weight: 70 kg

DRUGS (4)
  1. HUMIRA [Suspect]
     Indication: PSORIASIS
     Route: 058
     Dates: start: 20090210, end: 20091119
  2. AMLODIPINE [Concomitant]
     Indication: HYPERTENSION
     Route: 048
     Dates: start: 20090601
  3. BEZAFIBRATE [Concomitant]
     Indication: DYSLIPIDAEMIA
     Dates: start: 20080101
  4. DIAMICRON [Concomitant]
     Indication: DIABETES MELLITUS
     Dates: start: 20080101

REACTIONS (1)
  - LYMPHOCYTOSIS [None]
